FAERS Safety Report 11740181 (Version 2)
Quarter: 2015Q4

REPORT INFORMATION
  Report Type: Spontaneous
  Country: US (occurrence: US)
  Receive Date: 20151110
  Receipt Date: 20151120
  Transmission Date: 20160304
  Serious: No
  Sender: FDA-Public Use
  Company Number: US-ELI_LILLY_AND_COMPANY-US201204004443

PATIENT
  Age: 59 Year
  Sex: Female

DRUGS (3)
  1. PROLIA [Concomitant]
     Active Substance: DENOSUMAB
  2. CALCIUM [Concomitant]
     Active Substance: CALCIUM
  3. FORTEO [Suspect]
     Active Substance: TERIPARATIDE
     Indication: OSTEOPOROSIS
     Dosage: 20 UG, QD
     Dates: start: 20120403, end: 20120414

REACTIONS (18)
  - Injection site bruising [Unknown]
  - Bone swelling [Unknown]
  - Localised oedema [Unknown]
  - Nonspecific reaction [Unknown]
  - Injection site erythema [Unknown]
  - Arthralgia [Recovered/Resolved]
  - Peripheral swelling [Not Recovered/Not Resolved]
  - Injection site rash [Unknown]
  - Breast enlargement [Unknown]
  - Pain in extremity [Not Recovered/Not Resolved]
  - Erythema [Unknown]
  - Joint swelling [Unknown]
  - Anxiety [Not Recovered/Not Resolved]
  - Mass [Unknown]
  - Swelling face [Unknown]
  - Nerve compression [Not Recovered/Not Resolved]
  - Superficial vein prominence [Not Recovered/Not Resolved]
  - Bone disorder [Unknown]

NARRATIVE: CASE EVENT DATE: 201204
